FAERS Safety Report 7901091 (Version 5)
Quarter: 2013Q1

REPORT INFORMATION
  Report Type: Spontaneous
  Country: US (occurrence: US)
  Receive Date: 20110415
  Receipt Date: 20130305
  Transmission Date: 20140127
  Serious: Yes (Hospitalization)
  Sender: FDA-Public Use
  Company Number: US-BAYER-2011-032014

PATIENT
  Age: 34 Year
  Sex: Female

DRUGS (6)
  1. YASMIN [Suspect]
     Indication: CONTRACEPTION
     Dosage: UNK
     Dates: start: 2001, end: 200802
  2. VITAMIN C [Concomitant]
     Dosage: UNK UNK, PRN
     Dates: start: 1990
  3. IBUPROFEN [Concomitant]
     Indication: HEADACHE
     Dosage: 200 MG, UNK
     Dates: start: 1985
  4. METFORMIN [Concomitant]
     Indication: GLUCOSE TOLERANCE IMPAIRED
     Dosage: UNK
     Dates: start: 200603
  5. ZOLOFT [Concomitant]
     Indication: DEPRESSION
     Dosage: 100 MG, QD
     Dates: start: 2001
  6. ONE-A-DAY [MINERALS NOS,VITAMINS NOS] [Concomitant]
     Dosage: UNK UNK, QD
     Dates: start: 20070501

REACTIONS (6)
  - Myocardial infarction [None]
  - Injury [None]
  - Chest pain [None]
  - Back pain [None]
  - Pain [None]
  - Emotional distress [None]
